FAERS Safety Report 21545711 (Version 1)
Quarter: 2022Q4

REPORT INFORMATION
  Report Type: Spontaneous
  Country: US (occurrence: US)
  Receive Date: 20221103
  Receipt Date: 20221103
  Transmission Date: 20230113
  Serious: Yes (Other)
  Sender: FDA-Public Use
  Company Number: US-SUN PHARMACEUTICAL INDUSTRIES LTD-2022R1-361776

PATIENT
  Age: 15 Year
  Sex: Male

DRUGS (3)
  1. CALCITRIOL [Suspect]
     Active Substance: CALCITRIOL
     Indication: Hereditary hypophosphataemic rickets
     Dosage: 0.5 MILLIGRAM, BID
     Route: 065
  2. CALCIUM CARBONATE [Suspect]
     Active Substance: CALCIUM CARBONATE
     Indication: Hereditary hypophosphataemic rickets
     Dosage: 2000 MILLIGRAM, QID
     Route: 065
  3. PHOSPHA 250 NEUTRAL [Suspect]
     Active Substance: POTASSIUM PHOSPHATE, MONOBASIC\SODIUM PHOSPHATE, DIBASIC, ANHYDROUS\SODIUM PHOSPHATE, MONOBASIC, MON
     Indication: Hereditary hypophosphataemic rickets
     Dosage: 8 DOSAGE FORM, QID
     Route: 048

REACTIONS (2)
  - Drug ineffective [Unknown]
  - Hyperparathyroidism [Unknown]
